FAERS Safety Report 10235499 (Version 1)
Quarter: 2014Q1

REPORT INFORMATION
  Report Type: Spontaneous
  Country: US (occurrence: None)
  Receive Date: 20140306
  Receipt Date: 20140306
  Transmission Date: 20141002
  Serious: Yes (Other)
  Sender: FDA-Public Use
  Company Number: 163-21880-13010991

PATIENT
  Age: 63 Year
  Sex: Male
  Weight: 102.97 kg

DRUGS (4)
  1. REVLIMID (LENALIDOMIDE) (25 MILLIGRAM, CAPSULES) [Suspect]
     Indication: PLASMA CELL MYELOMA
     Route: 048
     Dates: start: 200812
  2. DEXAMETHASONE (DEXAMETHASONE) [Concomitant]
  3. HYDROCHLOROTHIAZIDE (HYDROCHLOROTHIAZIDE) [Concomitant]
  4. VITAMIN D (ERGOCALCIFEROL) [Concomitant]
     Indication: PLASMA CELL MYELOMA
     Dosage: 25 MG,1IN1D.

REACTIONS (5)
  - Balance disorder [None]
  - Nausea [None]
  - Asthenia [None]
  - Dizziness [None]
  - Red blood cell count decreased [None]
